FAERS Safety Report 8990739 (Version 1)
Quarter: 2012Q4

REPORT INFORMATION
  Report Type: Report from Study
  Country: CA (occurrence: CA)
  Receive Date: 20121228
  Receipt Date: 20121228
  Transmission Date: 20130627
  Serious: Yes (Hospitalization)
  Sender: FDA-Public Use
  Company Number: CA-JNJFOC-20121211518

PATIENT
  Age: 63 Year
  Sex: Male
  Weight: 72.3 kg

DRUGS (1)
  1. REMICADE [Suspect]
     Indication: CROHN^S DISEASE
     Route: 042
     Dates: start: 20100912

REACTIONS (2)
  - Faecaloma [Recovered/Resolved]
  - Gastrointestinal infection [Recovered/Resolved]
